FAERS Safety Report 9185721 (Version 1)
Quarter: 2013Q1

REPORT INFORMATION
  Report Type: Spontaneous
  Country: AU (occurrence: AU)
  Receive Date: 20130325
  Receipt Date: 20130325
  Transmission Date: 20140127
  Serious: Yes (Other)
  Sender: FDA-Public Use
  Company Number: PHHY2013AU027873

PATIENT
  Sex: Male

DRUGS (7)
  1. ACLASTA [Suspect]
     Dosage: UNK UKN, UNK
     Route: 042
  2. MIXTARD 30/70 ^NOVO NORDISK^ [Concomitant]
  3. ALLOPURINOL [Concomitant]
  4. RISPERIDONE [Concomitant]
  5. SERTRALINE HYDROCHLORIDE [Concomitant]
  6. SOTALOL HYDROCHLORIDE [Concomitant]
  7. SEROQUEL [Concomitant]

REACTIONS (4)
  - Suicidal ideation [Unknown]
  - Anxiety [Unknown]
  - Insomnia [Unknown]
  - Headache [Unknown]
